FAERS Safety Report 9788008 (Version 1)
Quarter: 2013Q4

REPORT INFORMATION
  Report Type: Spontaneous
  Country: US (occurrence: None)
  Receive Date: 20131227
  Receipt Date: 20131227
  Transmission Date: 20140711
  Serious: Yes (Disabling)
  Sender: FDA-Public Use
  Company Number: None

PATIENT
  Age: 11 Year
  Sex: Male
  Weight: 40.82 kg

DRUGS (1)
  1. PRILOSEC - OMEPRAZOLE VARIED [Suspect]
     Indication: NAUSEA
     Dosage: 10 MG - 40 MG WHEN STILL PAIN  ONCE DAILY  TAKEN BY MOUTH?OVER 1 1/2 YEARS
     Route: 048

REACTIONS (1)
  - Abdominal pain upper [None]
